FAERS Safety Report 9614218 (Version 1)
Quarter: 2013Q4

REPORT INFORMATION
  Report Type: Spontaneous
  Country: ID (occurrence: ID)
  Receive Date: 20131011
  Receipt Date: 20131011
  Transmission Date: 20140711
  Serious: Yes (Other)
  Sender: FDA-Public Use
  Company Number: ID-AMGEN-IDNSP2013071104

PATIENT
  Sex: Male

DRUGS (1)
  1. NEULASTIM [Suspect]
     Indication: NON-HODGKIN^S LYMPHOMA
     Dosage: UNK
     Route: 042

REACTIONS (1)
  - Pain [Unknown]
